FAERS Safety Report 8044631-9 (Version None)
Quarter: 2012Q1

REPORT INFORMATION
  Report Type: 
  Country: None (occurrence: None)
  Receive Date: 20120113
  Receipt Date: 20120104
  Transmission Date: 20120608
  Serious: Yes (Other)
  Sender: FDA-Public Use
  Company Number: CZ-PFIZER INC-2012007988

PATIENT
  Age: 62 Year
  Sex: Female

DRUGS (2)
  1. PACLITAXEL [Suspect]
     Indication: BREAST CANCER
     Dosage: 175 MG/M2, CYCLIC
     Dates: end: 20071001
  2. CARBOPLATIN [Suspect]
     Indication: BREAST CANCER
     Dosage: UNK
     Dates: end: 20071001

REACTIONS (8)
  - ASTHENIA [None]
  - DYSPNOEA [None]
  - NEOPLASM MALIGNANT [None]
  - DIZZINESS [None]
  - ACUTE MYELOID LEUKAEMIA [None]
  - FATIGUE [None]
  - EPISTAXIS [None]
  - PANCYTOPENIA [None]
